FAERS Safety Report 14793065 (Version 1)
Quarter: 2018Q2

REPORT INFORMATION
  Report Type: Spontaneous
  Country: US (occurrence: US)
  Receive Date: 20180414
  Receipt Date: 20180414
  Transmission Date: 20180711
  Serious: No
  Sender: FDA-Public Use
  Company Number: None

PATIENT
  Age: 52 Year
  Sex: Female

DRUGS (1)
  1. SUTENT [Suspect]
     Active Substance: SUNITINIB MALATE
     Route: 048
     Dates: start: 20180320

REACTIONS (5)
  - Blister [None]
  - Oral pain [None]
  - Tenderness [None]
  - Stomatitis [None]
  - Aphthous ulcer [None]

NARRATIVE: CASE EVENT DATE: 20180414
